FAERS Safety Report 6258992-4 (Version None)
Quarter: 2009Q3

REPORT INFORMATION
  Report Type: 
  Country: None (occurrence: None)
  Receive Date: 20090707
  Receipt Date: 20090629
  Transmission Date: 20100115
  Serious: Yes (Death)
  Sender: FDA-Public Use
  Company Number: PHEH2009US05789

PATIENT
  Sex: Male
  Weight: 82.72 kg

DRUGS (10)
  1. EXJADE [Suspect]
     Indication: IRON OVERLOAD
     Dosage: 375 MG, QD
     Route: 048
     Dates: start: 20081024, end: 20081230
  2. EXJADE [Suspect]
     Dosage: 500 MG, QD
     Route: 048
     Dates: start: 20081231, end: 20090208
  3. EXJADE [Suspect]
     Dosage: 1000 MG, QD
     Route: 048
     Dates: start: 20090209, end: 20090416
  4. CYTOXAN [Suspect]
     Indication: THYMOMA
     Dosage: 945 MG, UNK
     Route: 042
     Dates: start: 20090406, end: 20090408
  5. CISPLATIN [Suspect]
     Indication: THYMOMA
     Dosage: 60 MG, UNK
     Route: 042
     Dates: start: 20090406, end: 20090408
  6. ADRIAMYCIN RDF [Suspect]
     Indication: THYMOMA
     Dosage: 39 MG, UNK
     Route: 042
     Dates: start: 20090406, end: 20090408
  7. PREDNISONE TAB [Suspect]
     Indication: THYMOMA
     Dosage: 100 MG, UNK
     Route: 048
     Dates: start: 20090406, end: 20090408
  8. ASPIRIN [Concomitant]
     Dosage: UNK
     Route: 048
     Dates: end: 20090416
  9. COMPAZINE [Concomitant]
     Indication: NAUSEA
     Dosage: 10 MG, QD
     Route: 048
     Dates: start: 20090330, end: 20090416
  10. ZOFRAN [Concomitant]
     Indication: NAUSEA
     Dosage: 8 MG, Q8H
     Dates: start: 20090330, end: 20090416

REACTIONS (4)
  - FEBRILE NEUTROPENIA [None]
  - IMMUNODEFICIENCY [None]
  - MULTI-ORGAN FAILURE [None]
  - SEPSIS [None]
